FAERS Safety Report 10791767 (Version 2)
Quarter: 2015Q1

REPORT INFORMATION
  Report Type: Spontaneous
  Country: ES (occurrence: ES)
  Receive Date: 20150213
  Receipt Date: 20150317
  Transmission Date: 20150721
  Serious: Yes (Other)
  Sender: FDA-Public Use
  Company Number: ES-ROCHE-1536535

PATIENT
  Age: 44 Year
  Sex: Male

DRUGS (1)
  1. OMALIZUMAB [Suspect]
     Active Substance: OMALIZUMAB
     Indication: BRONCHOPULMONARY ASPERGILLOSIS ALLERGIC
     Route: 065
     Dates: start: 2010

REACTIONS (2)
  - Blood immunoglobulin E increased [Recovering/Resolving]
  - Aspergillus test positive [Recovering/Resolving]

NARRATIVE: CASE EVENT DATE: 2013
